FAERS Safety Report 7099751-2 (Version None)
Quarter: 2010Q4

REPORT INFORMATION
  Report Type: 
  Country: None (occurrence: None)
  Receive Date: 20101104
  Receipt Date: 20101025
  Transmission Date: 20110411
  Serious: Yes (Life-Threatening, Hospitalization, Other)
  Sender: FDA-Public Use
  Company Number: 2009AC000196

PATIENT
  Age: 90 Year
  Sex: Female

DRUGS (22)
  1. DIGOXIN [Suspect]
     Dosage: 0.125 MG;QD;PO
     Route: 048
     Dates: start: 20070111, end: 20080401
  2. DIGOXIN [Suspect]
     Dosage: .0125 MG;QD;PO
     Route: 048
     Dates: start: 20040218
  3. DIGOXIN [Suspect]
     Dosage: 0.25 MG;QD;PO
     Route: 048
     Dates: start: 20011011, end: 20011014
  4. DIGOXIN [Suspect]
     Dosage: 0.125 MG;QD;PO
     Route: 048
     Dates: start: 20011015, end: 20080401
  5. ASPIRIN [Concomitant]
  6. COREG [Concomitant]
  7. DEMADEX [Concomitant]
  8. POTASSIUM CHLORIDE [Concomitant]
  9. MULTI-VITAMIN [Concomitant]
  10. CEREFOLIN [Concomitant]
  11. VITAMIN B-12 [Concomitant]
  12. SUPER B COMPLEX [Concomitant]
  13. TORSEMIDE [Concomitant]
  14. CENTRUM [Concomitant]
  15. CARVEDILOL [Concomitant]
  16. FUROSEMIDE [Concomitant]
  17. CIPRO [Concomitant]
  18. MONOPRIL [Concomitant]
  19. MAXZIDE [Concomitant]
  20. LEVAQUIN [Concomitant]
  21. ROCEPHIN [Concomitant]
  22. DARVOCET [Concomitant]

REACTIONS (11)
  - ABDOMINAL PAIN [None]
  - ATRIAL FIBRILLATION [None]
  - CARDIAC FAILURE CONGESTIVE [None]
  - DEMENTIA ALZHEIMER'S TYPE [None]
  - DIARRHOEA [None]
  - ELECTROCARDIOGRAM ST-T SEGMENT ABNORMAL [None]
  - FATIGUE [None]
  - OSTEOARTHRITIS [None]
  - SEPSIS [None]
  - URINARY TRACT INFECTION [None]
  - WEIGHT DECREASED [None]
